FAERS Safety Report 12327371 (Version 1)
Quarter: 2016Q2

REPORT INFORMATION
  Report Type: Spontaneous
  Country: US (occurrence: None)
  Receive Date: 20160502
  Receipt Date: 20160502
  Transmission Date: 20160815
  Serious: Yes (Death)
  Sender: FDA-Public Use
  Company Number: None

PATIENT
  Age: 50 Year
  Sex: Male

DRUGS (2)
  1. TEMOZOLOMIDE 140MG CAP TEVA PHARMACEUTICALS USA [Suspect]
     Active Substance: TEMOZOLOMIDE
     Indication: BRAIN NEOPLASM MALIGNANT
     Dosage: 280 MG   DAILY X 5 DAYS EVERY 28 DAYS
     Route: 048
     Dates: end: 20160427
  2. TEMOZOLOMIDE 140MG CAP TEVA PHARMACEUTICALS USA [Suspect]
     Active Substance: TEMOZOLOMIDE
     Indication: BRAIN NEOPLASM MALIGNANT
     Dosage: 280MG  DAILY X 5 DAYS  EVERY 28 DAYS
     Route: 048
     Dates: end: 20160427

REACTIONS (1)
  - Death [None]

NARRATIVE: CASE EVENT DATE: 20160427
